FAERS Safety Report 19402761 (Version 2)
Quarter: 2022Q4

REPORT INFORMATION
  Report Type: Spontaneous
  Country: AT (occurrence: AT)
  Receive Date: 20210610
  Receipt Date: 20221222
  Transmission Date: 20230112
  Serious: Yes (Death, Other)
  Sender: FDA-Public Use
  Company Number: AT-ROCHE-2832624

PATIENT
  Age: 51 Year
  Sex: Female

DRUGS (13)
  1. CARBOPLATIN [Suspect]
     Active Substance: CARBOPLATIN
     Indication: Follicular lymphoma
     Dosage: UNK, AUC 5 AT DAY 2
  2. CARBOPLATIN [Suspect]
     Active Substance: CARBOPLATIN
     Indication: Diffuse large B-cell lymphoma
  3. RITUXIMAB [Suspect]
     Active Substance: RITUXIMAB
     Indication: Follicular lymphoma
     Dosage: UNK
  4. RITUXIMAB [Suspect]
     Active Substance: RITUXIMAB
     Indication: Diffuse large B-cell lymphoma
  5. IFOSFAMIDE [Suspect]
     Active Substance: IFOSFAMIDE
     Indication: Follicular lymphoma
     Dosage: 5000 MG/M2, DAY 2
  6. IFOSFAMIDE [Suspect]
     Active Substance: IFOSFAMIDE
     Indication: Diffuse large B-cell lymphoma
  7. POLIVY [Suspect]
     Active Substance: POLATUZUMAB VEDOTIN-PIIQ
     Indication: Follicular lymphoma
     Dosage: UNK, 1.8 MG/KG BW AT DAY 0
  8. POLIVY [Suspect]
     Active Substance: POLATUZUMAB VEDOTIN-PIIQ
     Indication: Diffuse large B-cell lymphoma
  9. OBINUTUZUMAB [Suspect]
     Active Substance: OBINUTUZUMAB
     Indication: Stem cell transplant
     Dosage: CYCLIC, MAINTAINED AT A FREQUENCY OF EVERY 2 MONTHS
     Route: 042
     Dates: start: 20200221, end: 202004
  10. OBINUTUZUMAB [Suspect]
     Active Substance: OBINUTUZUMAB
     Indication: Diffuse large B-cell lymphoma
     Dosage: UNK
     Route: 042
     Dates: start: 20200221
  11. OBINUTUZUMAB [Suspect]
     Active Substance: OBINUTUZUMAB
     Dosage: UNK, CYCLE 4-6 G-CHOP
     Route: 042
     Dates: start: 202004, end: 202006
  12. ETOPOSIDE [Suspect]
     Active Substance: ETOPOSIDE
     Indication: Follicular lymphoma
     Dosage: UNK, 100 MG/M2 AT DAY 1-3
  13. ETOPOSIDE [Suspect]
     Active Substance: ETOPOSIDE
     Indication: Diffuse large B-cell lymphoma

REACTIONS (26)
  - Neutropenia [Fatal]
  - Neoplasm progression [Fatal]
  - Peripheral swelling [Fatal]
  - Ascites [Fatal]
  - Abdominal lymphadenopathy [Fatal]
  - Angiopathy [Fatal]
  - Blood creatinine increased [Fatal]
  - Anaemia [Recovered/Resolved]
  - Thrombocytopenia [Recovered/Resolved]
  - Urinary tract obstruction [Unknown]
  - Febrile neutropenia [Unknown]
  - Thrombocytopenia [Unknown]
  - Hydronephrosis [Unknown]
  - Colitis [Unknown]
  - Anaemia [Unknown]
  - Cytokine release syndrome [Unknown]
  - Haematuria [Unknown]
  - Pyelonephritis [Unknown]
  - Tinnitus [Unknown]
  - Abdominal pain lower [Unknown]
  - Urinary tract disorder [Unknown]
  - Pyrexia [Unknown]
  - Vomiting [Unknown]
  - C-reactive protein increased [Unknown]
  - Product use issue [Unknown]
  - Off label use [Unknown]

NARRATIVE: CASE EVENT DATE: 20210315
